FAERS Safety Report 10074251 (Version 1)
Quarter: 2014Q2

REPORT INFORMATION
  Report Type: Spontaneous
  Country: US (occurrence: US)
  Receive Date: 20140411
  Receipt Date: 20140411
  Transmission Date: 20141212
  Serious: No
  Sender: FDA-Public Use
  Company Number: US-SANOFI-AVENTIS-2013SA038878

PATIENT
  Sex: Male

DRUGS (2)
  1. ALLEGRA D [Suspect]
     Indication: MULTIPLE ALLERGIES
     Route: 065
  2. SUDAFED [Suspect]
     Indication: MULTIPLE ALLERGIES
     Dosage: 1 TABLET IN THE MORNING AND COUPLE OF IT THROUGH OUT THE DAY AND STRENGTH WAS 30 MG
     Route: 048

REACTIONS (2)
  - Injury [Unknown]
  - Blood pressure increased [Unknown]
